FAERS Safety Report 4702249-7 (Version None)
Quarter: 2005Q2

REPORT INFORMATION
  Report Type: 
  Country: None (occurrence: None)
  Receive Date: 20050629
  Receipt Date: 20050323
  Transmission Date: 20051028
  Serious: No
  Sender: FDA-Public Use
  Company Number: US-BRISTOL-MYERS SQUIBB COMPANY-12907911

PATIENT
  Age: 35 Year
  Sex: Male

DRUGS (8)
  1. ATAZANAVIR [Suspect]
     Dates: start: 20041021, end: 20041101
  2. TRUVADA [Suspect]
     Dates: start: 20041021, end: 20041110
  3. DIDANOSINE [Concomitant]
     Dates: start: 20041021
  4. RITONAVIR [Concomitant]
     Dates: start: 20041021
  5. TRIMETHOPRIM-SULFAMETHOXAZOLE [Concomitant]
  6. CITALOPRAM [Concomitant]
  7. VALPROIC ACID [Concomitant]
  8. TRAZODONE HCL [Concomitant]

REACTIONS (2)
  - HYPERBILIRUBINAEMIA [None]
  - RASH MACULO-PAPULAR [None]
